FAERS Safety Report 6460901-X (Version None)
Quarter: 2009Q4

REPORT INFORMATION
  Report Type: 
  Country: None (occurrence: None)
  Receive Date: 20091130
  Receipt Date: 20091124
  Transmission Date: 20100525
  Serious: Yes (Death, Congenital Anomaly, Other)
  Sender: FDA-Public Use
  Company Number: DE-ASTRAZENECA-2009SE28298

PATIENT

DRUGS (1)
  1. CANDESARTAN CILEXETIL [Suspect]
     Route: 064

REACTIONS (6)
  - CONGENITAL ANOMALY [None]
  - NEONATAL ASPHYXIA [None]
  - PREMATURE BABY [None]
  - PULMONARY HYPOPLASIA [None]
  - SKULL MALFORMATION [None]
  - UNEQUAL LIMB LENGTH [None]
